FAERS Safety Report 11353111 (Version 1)
Quarter: 2015Q3

REPORT INFORMATION
  Report Type: Spontaneous
  Country: US (occurrence: US)
  Receive Date: 20150807
  Receipt Date: 20150807
  Transmission Date: 20151125
  Serious: No
  Sender: FDA-Public Use
  Company Number: US-JNJFOC-20141009747

PATIENT
  Age: 77 Year
  Sex: Male
  Weight: 74.84 kg

DRUGS (13)
  1. BENZONATATE. [Concomitant]
     Active Substance: BENZONATATE
     Indication: LUNG DISORDER
     Route: 065
  2. MENS ROGAINE EXTRA STRENGTH [Suspect]
     Active Substance: MINOXIDIL
     Indication: ALOPECIA
     Dosage: CAPFUL
     Route: 061
  3. LANTUS [Concomitant]
     Active Substance: INSULIN GLARGINE
     Indication: BLOOD INSULIN
     Route: 065
  4. ALL OTHER THERAPEUTIC DRUGS [Concomitant]
     Active Substance: UNSPECIFIED INGREDIENT
     Indication: PRODUCT USED FOR UNKNOWN INDICATION
     Route: 065
  5. ASPIRIN. [Concomitant]
     Active Substance: ASPIRIN
     Indication: PRODUCT USED FOR UNKNOWN INDICATION
     Route: 065
  6. SIMVASTATIN. [Concomitant]
     Active Substance: SIMVASTATIN
     Indication: BLOOD CHOLESTEROL
     Route: 065
  7. ANTIHISTAMINE ALLERGY RELIEF [Concomitant]
     Indication: HYPERSENSITIVITY
     Route: 065
  8. STOOL SOFTENER [Concomitant]
     Active Substance: DOCUSATE CALCIUM
     Indication: ABNORMAL FAECES
     Route: 065
  9. NOVOLOG [Concomitant]
     Active Substance: INSULIN ASPART
     Indication: BLOOD INSULIN
     Route: 065
  10. ACTOS [Concomitant]
     Active Substance: PIOGLITAZONE HYDROCHLORIDE
     Indication: BLOOD INSULIN
     Dosage: DOSE: 15/850 MG
     Route: 065
  11. DIOVAN [Concomitant]
     Active Substance: VALSARTAN
     Indication: BLOOD PRESSURE MEASUREMENT
     Route: 065
  12. MENS ROGAINE EXTRA STRENGTH [Suspect]
     Active Substance: MINOXIDIL
     Route: 061
  13. TAMSULOSIN [Concomitant]
     Active Substance: TAMSULOSIN
     Indication: PROSTATIC DISORDER
     Route: 065

REACTIONS (2)
  - Incorrect dose administered [Unknown]
  - Drug ineffective [Unknown]
